FAERS Safety Report 5317771-2 (Version None)
Quarter: 2007Q2

REPORT INFORMATION
  Report Type: 
  Country: None (occurrence: None)
  Receive Date: 20070507
  Receipt Date: 20070425
  Transmission Date: 20071010
  Serious: Yes (Other)
  Sender: FDA-Public Use
  Company Number: ES-AMGEN-UK218963

PATIENT
  Sex: Male

DRUGS (3)
  1. NEULASTA [Suspect]
     Indication: CHEMOTHERAPY
     Route: 058
  2. ETOPOSIDE [Concomitant]
     Route: 065
  3. CISPLATIN [Concomitant]
     Route: 065

REACTIONS (2)
  - MEDICATION ERROR [None]
  - NEUTROPENIA [None]
